FAERS Safety Report 4779535-8 (Version None)
Quarter: 2005Q3

REPORT INFORMATION
  Report Type: 
  Country: None (occurrence: None)
  Receive Date: 20050923
  Receipt Date: 20050913
  Transmission Date: 20060218
  Serious: Yes (Hospitalization, Other)
  Sender: FDA-Public Use
  Company Number: 2005127003

PATIENT
  Age: 52 Year
  Sex: Male

DRUGS (2)
  1. PHENYTOIN SODIUM [Suspect]
     Indication: GRAND MAL CONVULSION
     Dosage: 300 MG (UNKNOWN), ORAL
     Route: 048
  2. FOLIC ACID [Suspect]
     Indication: ANAEMIA MACROCYTIC
     Dosage: UNKNOWN
     Route: 065

REACTIONS (3)
  - ANAEMIA MACROCYTIC [None]
  - GRAND MAL CONVULSION [None]
  - HIP FRACTURE [None]
